FAERS Safety Report 11569457 (Version 1)
Quarter: 2015Q3

REPORT INFORMATION
  Report Type: Spontaneous
  Country: US (occurrence: US)
  Receive Date: 20150929
  Receipt Date: 20150929
  Transmission Date: 20151125
  Serious: No
  Sender: FDA-Public Use
  Company Number: US-BAYER-2015-426883

PATIENT
  Age: 64 Year
  Sex: Female
  Weight: 83.45 kg

DRUGS (3)
  1. TRIAMTERENE. [Concomitant]
     Active Substance: TRIAMTERENE
  2. CLARITIN [Suspect]
     Active Substance: LORATADINE
     Route: 048
  3. CLARITIN [Suspect]
     Active Substance: LORATADINE
     Route: 048

REACTIONS (2)
  - Product use issue [None]
  - Self-induced vomiting [None]

NARRATIVE: CASE EVENT DATE: 20150917
